FAERS Safety Report 6331464-4 (Version None)
Quarter: 2009Q3

REPORT INFORMATION
  Report Type: 
  Country: None (occurrence: None)
  Receive Date: 20090827
  Receipt Date: 20090817
  Transmission Date: 20100115
  Serious: Yes (Life-Threatening, Hospitalization)
  Sender: FDA-Public Use
  Company Number: FR-PFIZER INC-2008089791

PATIENT
  Age: 48 Year

DRUGS (2)
  1. TAHOR [Suspect]
     Indication: MYOCARDIAL INFARCTION
     Dosage: 80 MG, 1X/DAY
     Route: 048
     Dates: start: 20060720, end: 20080922
  2. EZETROL [Concomitant]

REACTIONS (1)
  - AMYOTROPHIC LATERAL SCLEROSIS [None]
